FAERS Safety Report 5087235-2 (Version None)
Quarter: 2006Q3

REPORT INFORMATION
  Report Type: 
  Country: None (occurrence: None)
  Receive Date: 20060821
  Receipt Date: 20060810
  Transmission Date: 20061208
  Serious: Yes (Hospitalization)
  Sender: FDA-Public Use
  Company Number: 111952ISR

PATIENT
  Age: 52 Year
  Sex: Male

DRUGS (6)
  1. CISPLATIN [Suspect]
     Dosage: INTRAVENOUS (NOS)
     Route: 042
     Dates: start: 20060731, end: 20060731
  2. DOCETAXEL [Suspect]
     Dosage: INTRAVENOUS (NOS)
     Route: 042
     Dates: start: 20060731, end: 20060731
  3. BISOPROLOL FUMARATE [Concomitant]
  4. PANTOPRAZOLE SODIUM [Concomitant]
  5. ENOXAPARIN SODIUM [Concomitant]
  6. NEUPOGEN [Concomitant]

REACTIONS (3)
  - ABDOMINAL PAIN [None]
  - GASTROINTESTINAL DISORDER [None]
  - URINARY TRACT INFECTION [None]
